FAERS Safety Report 6861837-2 (Version None)
Quarter: 2010Q3

REPORT INFORMATION
  Report Type: 
  Country: None (occurrence: None)
  Receive Date: 20100721
  Receipt Date: 20100713
  Transmission Date: 20110219
  Serious: No
  Sender: FDA-Public Use
  Company Number: US-BIOGENIDEC-2010BI024426

PATIENT
  Age: 66 Year
  Sex: Female

DRUGS (5)
  1. TYSABRI [Suspect]
     Indication: MULTIPLE SCLEROSIS
     Route: 042
     Dates: start: 20070101
  2. HYDROCODONE [Concomitant]
     Indication: FIBROMYALGIA
  3. HYDROCODONE [Concomitant]
     Indication: BACK PAIN
  4. REQUIP [Concomitant]
     Indication: RESTLESS LEGS SYNDROME
  5. REQUIP [Concomitant]

REACTIONS (2)
  - HEADACHE [None]
  - PAIN IN EXTREMITY [None]
